FAERS Safety Report 5850484-7 (Version None)
Quarter: 2008Q3

REPORT INFORMATION
  Report Type: 
  Country: None (occurrence: None)
  Receive Date: 20080818
  Receipt Date: 20080813
  Transmission Date: 20090109
  Serious: Yes (Hospitalization)
  Sender: FDA-Public Use
  Company Number: WAES 0808USA01271

PATIENT
  Age: 56 Year
  Sex: Female
  Weight: 71.6683 kg

DRUGS (4)
  1. ZETIA [Suspect]
     Indication: DYSLIPIDAEMIA
     Dosage: UNK/UNK/PO
     Route: 048
     Dates: start: 20080514, end: 20080622
  2. ATORVASTATIN CALCIUM [Suspect]
     Indication: DYSLIPIDAEMIA
     Dosage: UNK/UNK/PO
     Route: 048
     Dates: start: 20080514, end: 20080622
  3. TAB BLINDED THERAPY UNK [Suspect]
     Indication: DYSLIPIDAEMIA
     Dosage: UNK/UNK/PO
     Route: 048
     Dates: start: 20080514, end: 20080622
  4. MEFENAMIC ACID [Concomitant]

REACTIONS (13)
  - ABDOMINAL PAIN UPPER [None]
  - ALANINE AMINOTRANSFERASE INCREASED [None]
  - ASPARTATE AMINOTRANSFERASE INCREASED [None]
  - BLOOD ALKALINE PHOSPHATASE INCREASED [None]
  - BLOOD CREATINE PHOSPHOKINASE INCREASED [None]
  - CARDIAC MURMUR [None]
  - CHOLELITHIASIS [None]
  - COUGH [None]
  - DYSPEPSIA [None]
  - EPIGASTRIC DISCOMFORT [None]
  - ISCHAEMIA [None]
  - NON-CARDIAC CHEST PAIN [None]
  - OESOPHAGEAL PAIN [None]
